FAERS Safety Report 18954107 (Version 1)
Quarter: 2021Q1

REPORT INFORMATION
  Report Type: Spontaneous
  Country: US (occurrence: US)
  Receive Date: 20210301
  Receipt Date: 20210301
  Transmission Date: 20210420
  Serious: Yes (Other)
  Sender: FDA-Public Use
  Company Number: US-MYLANLABS-2021M1009189

PATIENT
  Sex: Male

DRUGS (5)
  1. VENLAFAXINE [Suspect]
     Active Substance: VENLAFAXINE HYDROCHLORIDE
     Dosage: 37.5 UNK
     Route: 048
     Dates: start: 201905
  2. LIPITOR [Concomitant]
     Active Substance: ATORVASTATIN CALCIUM
     Indication: HYPERLIPIDAEMIA
     Dosage: 10 MILLIGRAM, QD
  3. VENLAFAXINE [Suspect]
     Active Substance: VENLAFAXINE HYDROCHLORIDE
     Indication: BACK PAIN
     Dosage: 3 CAPSULES BY MOUTH ONCE DAILY
     Route: 048
     Dates: start: 2012
  4. VENLAFAXINE [Suspect]
     Active Substance: VENLAFAXINE HYDROCHLORIDE
     Dosage: 250 MILLIGRAM, QD
     Route: 048
     Dates: start: 2012
  5. VENLAFAXINE [Suspect]
     Active Substance: VENLAFAXINE HYDROCHLORIDE
     Dosage: 112.5 MILLIGRAM, QD
     Route: 048

REACTIONS (13)
  - Disturbance in attention [Recovered/Resolved]
  - Product use in unapproved indication [Not Recovered/Not Resolved]
  - Withdrawal syndrome [Recovered/Resolved]
  - Dysuria [Recovered/Resolved]
  - Drug ineffective for unapproved indication [Not Recovered/Not Resolved]
  - Feeling abnormal [Recovered/Resolved]
  - Intentional product use issue [Not Recovered/Not Resolved]
  - Palpitations [Recovered/Resolved]
  - Cardiac flutter [Recovered/Resolved]
  - Ejaculation failure [Recovered/Resolved]
  - Chest pain [Recovered/Resolved]
  - Anorgasmia [Recovered/Resolved]
  - Therapeutic product effective for unapproved indication [Recovered/Resolved]

NARRATIVE: CASE EVENT DATE: 2012
